FAERS Safety Report 5497890-0 (Version None)
Quarter: 2007Q4

REPORT INFORMATION
  Report Type: 
  Country: None (occurrence: None)
  Receive Date: 20071025
  Receipt Date: 20071016
  Transmission Date: 20080405
  Serious: Yes (Other)
  Sender: FDA-Public Use
  Company Number: CA-SHR-CA-2007-037086

PATIENT
  Age: 49 Year
  Sex: Male
  Weight: 80 kg

DRUGS (7)
  1. BETASERON [Suspect]
     Indication: RELAPSING-REMITTING MULTIPLE SCLEROSIS
     Dosage: 8 MIU, 3X/WEEK
     Route: 058
     Dates: start: 20040428, end: 20071014
  2. GABAPENTIN [Concomitant]
     Dosage: 1 TAB(S), UNK
     Route: 048
  3. BACLOFEN [Concomitant]
     Dosage: 10 MG, 3X/DAY
     Route: 048
  4. LIPITOR [Concomitant]
     Dosage: 20 MG, 1X/DAY
  5. SYMMETREL [Concomitant]
     Dosage: 100 MG, 2X/DAY
  6. RABEPRAZOLE SODIUM [Concomitant]
     Dosage: 20 MG, 1X/DAY
  7. CELEBREX [Concomitant]
     Dosage: 200 MG, 1X/DAY

REACTIONS (3)
  - ABDOMINAL DISTENSION [None]
  - HEPATIC STEATOSIS [None]
  - HEPATOSPLENOMEGALY [None]
